FAERS Safety Report 18435128 (Version 1)
Quarter: 2020Q4

REPORT INFORMATION
  Report Type: Report from Study
  Country: US (occurrence: US)
  Receive Date: 20201027
  Receipt Date: 20201027
  Transmission Date: 20210114
  Serious: Yes (Hospitalization, Other)
  Sender: FDA-Public Use
  Company Number: US-INCYTE CORPORATION-2020IN008996

PATIENT

DRUGS (4)
  1. RENAGEL [Concomitant]
     Active Substance: SEVELAMER HYDROCHLORIDE
     Dosage: 1600 MILLIGRAM, TID
     Route: 048
     Dates: start: 20200908
  2. RETIFANLIMAB. [Suspect]
     Active Substance: RETIFANLIMAB
     Indication: PANCREATIC CARCINOMA STAGE IV
     Dosage: 500 MILLIGRAM, Q4W
     Route: 042
     Dates: start: 20200812
  3. RENAGEL [Concomitant]
     Active Substance: SEVELAMER HYDROCHLORIDE
     Indication: HYPERPHOSPHATAEMIA
     Dosage: 800 MILLIGRAM, TID
     Route: 048
     Dates: start: 20200826
  4. INCB054828 [Suspect]
     Active Substance: PEMIGATINIB
     Indication: PANCREATIC CARCINOMA STAGE IV
     Dosage: 20 MILLIGRAM, QD
     Route: 048
     Dates: start: 20200812, end: 20200910

REACTIONS (2)
  - Acute kidney injury [Recovered/Resolved]
  - Calciphylaxis [Not Recovered/Not Resolved]

NARRATIVE: CASE EVENT DATE: 20200914
